FAERS Safety Report 19063258 (Version 1)
Quarter: 2021Q1

REPORT INFORMATION
  Report Type: Spontaneous
  Country: US (occurrence: US)
  Receive Date: 20210326
  Receipt Date: 20210326
  Transmission Date: 20210420
  Serious: No
  Sender: FDA-Public Use
  Company Number: US-GILEAD-2021-0519275

PATIENT
  Age: 68 Year
  Sex: Female

DRUGS (8)
  1. ARIMIDEX [Concomitant]
     Active Substance: ANASTROZOLE
  2. EPCLUSA [Suspect]
     Active Substance: SOFOSBUVIR\VELPATASVIR
     Indication: CHRONIC HEPATITIS C
     Dosage: 1 DOSAGE FORM, QD
     Route: 048
  3. ASPIRIN [ACETYLSALICYLIC ACID] [Concomitant]
     Active Substance: ASPIRIN
  4. LOSARTAN POTASSIUM. [Concomitant]
     Active Substance: LOSARTAN POTASSIUM
  5. MYRBETRIQ [Concomitant]
     Active Substance: MIRABEGRON
  6. VITAMIN C [Concomitant]
     Active Substance: ASCORBIC ACID
  7. FLONASE [Concomitant]
     Active Substance: FLUTICASONE PROPIONATE
  8. GARLIC [ALLIUM SATIVUM] [Concomitant]
     Active Substance: GARLIC

REACTIONS (1)
  - Product dose omission issue [Not Recovered/Not Resolved]

NARRATIVE: CASE EVENT DATE: 202102
